FAERS Safety Report 17300748 (Version 2)
Quarter: 2020Q4

REPORT INFORMATION
  Report Type: Spontaneous
  Country: US (occurrence: US)
  Receive Date: 20200122
  Receipt Date: 20201118
  Transmission Date: 20210113
  Serious: No
  Sender: FDA-Public Use
  Company Number: US-VERTEX PHARMACEUTICALS-2020-000755

PATIENT
  Sex: Male
  Weight: 81.63 kg

DRUGS (3)
  1. SYMDEKO [Suspect]
     Active Substance: IVACAFTOR\TEZACAFTOR
     Indication: CYSTIC FIBROSIS
     Dosage: 1 TAB (100MG TEZACATOR/150MG IVACAFTOR) AM, 1 TAB (150MG IVACAFTOR) PM
     Route: 048
  2. SYMDEKO [Suspect]
     Active Substance: IVACAFTOR\TEZACAFTOR
     Dosage: 1 TAB (100MG TEZACATOR/150MG IVACAFTOR) AM
     Route: 048
  3. HYPERSAL [Concomitant]
     Active Substance: SODIUM CHLORIDE
     Dosage: 7 %
     Route: 055

REACTIONS (1)
  - Hepatic enzyme increased [Not Recovered/Not Resolved]
